FAERS Safety Report 4561526-3 (Version None)
Quarter: 2005Q1

REPORT INFORMATION
  Report Type: 
  Country: None (occurrence: None)
  Receive Date: 20050126
  Receipt Date: 20001124
  Transmission Date: 20050727
  Serious: Yes (Death, Hospitalization)
  Sender: FDA-Public Use
  Company Number: 10622827

PATIENT
  Sex: Female

DRUGS (13)
  1. ZERIT [Suspect]
     Indication: HIV TEST POSITIVE
     Route: 048
  2. VIDEX [Suspect]
     Indication: HIV TEST POSITIVE
     Dosage: STARTED WEEK 13 OF GESTATION
     Route: 048
  3. SUSTIVA [Suspect]
     Dosage: DISCONTINUED WEEK 6 OF GESTATION
     Route: 048
     Dates: start: 19990601
  4. COMBIVIR [Suspect]
     Dosage: DISCONTINUED AFTER 1ST GESTATIONAL WEEK.
     Route: 048
     Dates: start: 19990601
  5. CRIXIVAN [Suspect]
     Dosage: DISCONTINUED AT 16TH GESTATIONAL WEEK.
     Route: 048
     Dates: start: 19990601
  6. NORVIR [Suspect]
     Dosage: INFUSION AT DELIVERY
     Route: 042
     Dates: start: 20000306, end: 20000306
  7. VIRAMUNE [Suspect]
     Dosage: INFUSION GIVEN AT DELIVERY
     Route: 042
     Dates: start: 20000306, end: 20000306
  8. INVIRASE [Suspect]
     Indication: HIV INFECTION
     Dosage: ONGOING GESTATIONAL WEEKS 16 TO 30
  9. BACTRIM [Concomitant]
  10. GYNOPEVARYL [Concomitant]
     Dosage: VAGINAL SUPPOSITORIES AT GESTATIONAL WEEKS 16 AND 35
     Route: 067
  11. NICARDIPINE HCL [Concomitant]
     Dosage: STARTED WEEK 35 OF GESTATION
  12. ALBUTEROL [Concomitant]
     Dosage: STARTED WEEK 35 OF GESTATION
  13. SPASFON [Concomitant]
     Dosage: FROM GESTATIONAL WEEK 35

REACTIONS (7)
  - CAESAREAN SECTION [None]
  - DEATH [None]
  - DRUG EXPOSURE DURING PREGNANCY [None]
  - HYPERTENSION [None]
  - PREGNANCY [None]
  - PREMATURE LABOUR [None]
  - RENAL COLIC [None]
